FAERS Safety Report 19188818 (Version 3)
Quarter: 2021Q2

REPORT INFORMATION
  Report Type: Spontaneous
  Country: US (occurrence: US)
  Receive Date: 20210428
  Receipt Date: 20210616
  Transmission Date: 20210717
  Serious: No
  Sender: FDA-Public Use
  Company Number: US-ASTRAZENECA-2021A299602

PATIENT
  Age: 68 Year
  Sex: Male
  Weight: 145.6 kg

DRUGS (28)
  1. BRILINTA [Suspect]
     Active Substance: TICAGRELOR
     Indication: STENT PLACEMENT
     Route: 048
     Dates: start: 20210129
  2. BACLOFEN. [Concomitant]
     Active Substance: BACLOFEN
  3. PRILOSEC [Suspect]
     Active Substance: OMEPRAZOLE MAGNESIUM
     Route: 048
  4. CODEINE [Concomitant]
     Active Substance: CODEINE
  5. FUROSEMIDE. [Concomitant]
     Active Substance: FUROSEMIDE
  6. XYLOCAINE [Concomitant]
     Active Substance: LIDOCAINE HYDROCHLORIDE
  7. ONDANSETRON [Concomitant]
     Active Substance: ONDANSETRON
  8. METOPROLOL SUCCINATE. [Concomitant]
     Active Substance: METOPROLOL SUCCINATE
  9. ELIQUIS [Concomitant]
     Active Substance: APIXABAN
  10. SITAGLIPTIN [Concomitant]
     Active Substance: SITAGLIPTIN
  11. ZINC SULFATE. [Concomitant]
     Active Substance: ZINC SULFATE
  12. METFORMIN [Concomitant]
     Active Substance: METFORMIN HYDROCHLORIDE
     Route: 048
  13. JANUVIA [Concomitant]
     Active Substance: SITAGLIPTIN PHOSPHATE
     Route: 048
  14. CHOLECACIFEROL [Concomitant]
  15. DOCUSATE SODIUM. [Concomitant]
     Active Substance: DOCUSATE SODIUM
  16. FERROUS SULFATE. [Concomitant]
     Active Substance: FERROUS SULFATE
  17. AZULFIDINE [Concomitant]
     Active Substance: SULFASALAZINE
  18. GLYBURIDE. [Concomitant]
     Active Substance: GLYBURIDE
     Route: 048
  19. ALLOPURINOL. [Concomitant]
     Active Substance: ALLOPURINOL
  20. MAGNESIUM CITRATE. [Concomitant]
     Active Substance: MAGNESIUM CITRATE
  21. ATORVASTATIN [Concomitant]
     Active Substance: ATORVASTATIN
     Indication: HYPERLIPIDAEMIA
     Route: 048
  22. ARMOUR THYROID [Concomitant]
     Active Substance: THYROID, PORCINE
     Indication: THYROID DISORDER
     Route: 048
  23. VASCEPA [Concomitant]
     Active Substance: ICOSAPENT ETHYL
  24. FENTANYL. [Concomitant]
     Active Substance: FENTANYL
  25. BRILINTA [Suspect]
     Active Substance: TICAGRELOR
     Indication: STENT PLACEMENT
     Route: 048
     Dates: start: 20201219
  26. LISINOPRIL. [Concomitant]
     Active Substance: LISINOPRIL
  27. CALCIUM CARBONATE. [Concomitant]
     Active Substance: CALCIUM CARBONATE
  28. FOLIC ACID. [Concomitant]
     Active Substance: FOLIC ACID

REACTIONS (3)
  - Cough [Unknown]
  - Nausea [Unknown]
  - Tremor [Not Recovered/Not Resolved]
